FAERS Safety Report 8416858-5 (Version None)
Quarter: 2012Q2

REPORT INFORMATION
  Report Type: 
  Country: None (occurrence: None)
  Receive Date: 20120606
  Receipt Date: 20120530
  Transmission Date: 20120825
  Serious: Yes (Hospitalization)
  Sender: FDA-Public Use
  Company Number: US-BRISTOL-MYERS SQUIBB COMPANY-16646580

PATIENT
  Age: 71 Year
  Sex: Female
  Weight: 113 kg

DRUGS (7)
  1. CELEBREX [Suspect]
     Indication: ARTHRITIS
     Dosage: RESTARTED IN JAN-2012
     Route: 048
     Dates: start: 20000101
  2. ASPIRIN [Concomitant]
     Indication: COAGULOPATHY
  3. BETAPACE [Concomitant]
  4. BENAZEPRIL HYDROCHLORIDE [Concomitant]
  5. POTASSIUM CHLORIDE [Concomitant]
  6. NORVASC [Concomitant]
  7. COUMADIN [Suspect]
     Indication: COAGULOPATHY
     Dates: start: 20040101

REACTIONS (1)
  - CARDIAC FIBRILLATION [None]
